FAERS Safety Report 21484903 (Version 1)
Quarter: 2022Q4

REPORT INFORMATION
  Report Type: Spontaneous
  Country: US (occurrence: None)
  Receive Date: 20221019
  Receipt Date: 20221019
  Transmission Date: 20230112
  Serious: Yes (Life-Threatening, Disabling)
  Sender: FDA-Public Use
  Company Number: None

PATIENT
  Age: 30 Year
  Sex: Female
  Weight: 101.25 kg

DRUGS (8)
  1. LAMOTRIGINE [Suspect]
     Active Substance: LAMOTRIGINE
     Indication: Bipolar disorder
     Dosage: OTHER QUANTITY : 1 TABLET(S);?FREQUENCY : DAILY;?
     Route: 048
     Dates: start: 20220926, end: 20221019
  2. VENLAFAXINE [Concomitant]
     Active Substance: VENLAFAXINE HYDROCHLORIDE
  3. LAMOTRIGINE [Concomitant]
     Active Substance: LAMOTRIGINE
  4. METHYLPHENIDATE [Concomitant]
     Active Substance: METHYLPHENIDATE
  5. SINGULAIR [Concomitant]
     Active Substance: MONTELUKAST SODIUM
  6. CLARITIN [Concomitant]
     Active Substance: LORATADINE
  7. METFORMIN [Concomitant]
     Active Substance: METFORMIN HYDROCHLORIDE
  8. DEVICE [Concomitant]
     Active Substance: DEVICE

REACTIONS (8)
  - Withdrawal syndrome [None]
  - Bipolar disorder [None]
  - Suicidal ideation [None]
  - Depression [None]
  - Performance status decreased [None]
  - Irritability [None]
  - Emotional disorder [None]
  - Product substitution issue [None]

NARRATIVE: CASE EVENT DATE: 20221019
